FAERS Safety Report 6826982-6 (Version None)
Quarter: 2010Q3

REPORT INFORMATION
  Report Type: 
  Country: None (occurrence: None)
  Receive Date: 20100709
  Receipt Date: 20100630
  Transmission Date: 20110219
  Serious: Yes (Hospitalization, Other)
  Sender: FDA-Public Use
  Company Number: CA-ABBOTT-10P-028-0652108-00

PATIENT
  Sex: Male

DRUGS (4)
  1. KALETRA [Suspect]
     Indication: HIV INFECTION
     Dosage: 800/200 MG
     Route: 048
     Dates: start: 20100105
  2. KALETRA [Suspect]
     Indication: HEPATITIS C
  3. TRUVADA [Concomitant]
     Indication: PRODUCT USED FOR UNKNOWN INDICATION
     Dosage: 200MG/300 MG
     Dates: start: 20100413
  4. VALPROIC ACID [Concomitant]
     Indication: CONVULSION

REACTIONS (2)
  - CONVULSION [None]
  - RETINAL DETACHMENT [None]
